FAERS Safety Report 8829393 (Version 5)
Quarter: 2012Q4

REPORT INFORMATION
  Report Type: 
  Country: US (occurrence: US)
  Receive Date: 20121008
  Receipt Date: 20121029
  Transmission Date: 20130627
  Serious: Yes (Hospitalization, Other)
  Sender: FDA-Public Use
  Company Number: US-ABBOTT-12P-163-0991372-00

PATIENT
  Age: 61 Year
  Sex: Male
  Weight: 104.42 kg

DRUGS (7)
  1. ANDROGEL [Suspect]
     Indication: HORMONE REPLACEMENT THERAPY
     Dosage: two pumps
     Dates: start: 20120922, end: 20120924
  2. METFORMIN [Concomitant]
     Indication: DIABETES MELLITUS
  3. GLIPIZIDE ER [Concomitant]
     Indication: DIABETES MELLITUS
  4. BENAZEPRIL [Concomitant]
     Indication: DIABETES MELLITUS
  5. BENAZEPRIL [Concomitant]
     Indication: RENAL DISORDER
  6. SERTRALINE [Concomitant]
     Indication: DEPRESSION
  7. VICTOZA [Concomitant]
     Indication: DIABETES MELLITUS

REACTIONS (5)
  - Hyperhidrosis [Recovered/Resolved]
  - Incoherent [Recovered/Resolved]
  - Swollen tongue [Recovered/Resolved]
  - Blood pressure decreased [Recovered/Resolved]
  - Hypersensitivity [Recovered/Resolved]
